FAERS Safety Report 20745795 (Version 1)
Quarter: 2022Q2

REPORT INFORMATION
  Report Type: Spontaneous
  Country: US (occurrence: None)
  Receive Date: 20220423
  Receipt Date: 20220423
  Transmission Date: 20220721
  Serious: No
  Sender: FDA-Public Use
  Company Number: None

PATIENT
  Age: 46 Year
  Sex: Female
  Weight: 103.5 kg

DRUGS (21)
  1. XIIDRA [Suspect]
     Active Substance: LIFITEGRAST
     Indication: Meibomian gland dysfunction
     Dosage: OTHER QUANTITY : 1 CONTAINERS;?FREQUENCY : TWICE A DAY;?
     Route: 047
     Dates: start: 20220422, end: 20220422
  2. TOPAMAX [Concomitant]
     Active Substance: TOPIRAMATE
  3. COMPAZINE [Concomitant]
     Active Substance: PROCHLORPERAZINE MALEATE
  4. Omega [Concomitant]
  5. KRILL OIL [Concomitant]
     Active Substance: DIETARY SUPPLEMENT\KRILL OIL
  6. CALCIUM CITRATE [Concomitant]
     Active Substance: CALCIUM CITRATE
  7. VITAMIN D3 [Concomitant]
     Active Substance: CHOLECALCIFEROL
  8. JWH-018 [Concomitant]
     Active Substance: JWH-018
  9. Beet Root Gummy [Concomitant]
  10. Tumeric/Ginger/Black Pepper gummy [Concomitant]
  11. MAGNESIUM [Concomitant]
     Active Substance: MAGNESIUM
  12. LOW DOSE ASPIRIN [Concomitant]
     Active Substance: ASPIRIN
  13. MELATONIN [Concomitant]
     Active Substance: MELATONIN
  14. CETIRIZINE HCL [Concomitant]
     Active Substance: CETIRIZINE HYDROCHLORIDE
  15. LUTEIN [Concomitant]
     Active Substance: LUTEIN
  16. Quercetin Bromelain [Concomitant]
  17. TESTOSTERONE [Concomitant]
     Active Substance: TESTOSTERONE
  18. ESTROGENS [Concomitant]
     Active Substance: ESTROGENS
  19. GLUTATHIONE [Concomitant]
     Active Substance: GLUTATHIONE
  20. VITAMIN B12 [Concomitant]
     Active Substance: CYANOCOBALAMIN
  21. NAD [Concomitant]

REACTIONS (5)
  - Headache [None]
  - Dizziness [None]
  - Vision blurred [None]
  - Dysgeusia [None]
  - Insomnia [None]

NARRATIVE: CASE EVENT DATE: 20220422
